FAERS Safety Report 6058427-0 (Version None)
Quarter: 2009Q1

REPORT INFORMATION
  Report Type: 
  Country: None (occurrence: None)
  Receive Date: 20090130
  Receipt Date: 20090122
  Transmission Date: 20090719
  Serious: Yes (Other)
  Sender: FDA-Public Use
  Company Number: US-JNJFOC-20090106180

PATIENT
  Sex: Male
  Weight: 127.01 kg

DRUGS (10)
  1. DURAGESIC-100 [Suspect]
     Route: 062
  2. DURAGESIC-100 [Suspect]
     Indication: PAIN
     Route: 062
  3. ACTOS [Concomitant]
     Indication: DIABETES MELLITUS
     Route: 048
  4. LANTUS [Concomitant]
     Dosage: 20 UNITS AT BED TIME
     Route: 058
  5. LANTUS [Concomitant]
     Indication: DIABETES MELLITUS
     Dosage: 10 UNITS
     Route: 058
  6. ATROVENT [Concomitant]
     Indication: CHRONIC OBSTRUCTIVE PULMONARY DISEASE
     Dosage: 36 MCG/SPRAY/18 MCG, 2 PUFFS AS NEEDED
  7. COMBIVENT [Concomitant]
     Indication: CHRONIC OBSTRUCTIVE PULMONARY DISEASE
  8. LEVOTHROID [Concomitant]
     Indication: HYPOTHYROIDISM
     Route: 048
  9. ARICEPT [Concomitant]
     Indication: MEMORY IMPAIRMENT
     Route: 048
  10. SEROQUEL [Concomitant]
     Indication: INSOMNIA
     Dosage: AT BED TIME DAILY AS NEEDED
     Route: 048

REACTIONS (13)
  - ARTHROPATHY [None]
  - ASTHENIA [None]
  - DRUG DOSE OMISSION [None]
  - FALL [None]
  - FEELING ABNORMAL [None]
  - HYPOAESTHESIA [None]
  - INAPPROPRIATE SCHEDULE OF DRUG ADMINISTRATION [None]
  - MUSCULOSKELETAL PAIN [None]
  - NECK PAIN [None]
  - PAIN [None]
  - ROTATOR CUFF SYNDROME [None]
  - SOMNOLENCE [None]
  - WEIGHT DECREASED [None]
